FAERS Safety Report 7541739-9 (Version None)
Quarter: 2011Q2

REPORT INFORMATION
  Report Type: 
  Country: None (occurrence: None)
  Receive Date: 20110606
  Receipt Date: 20110527
  Transmission Date: 20111010
  Serious: Yes (Other)
  Sender: FDA-Public Use
  Company Number: B0722427A

PATIENT
  Age: 82 Year
  Sex: Female

DRUGS (5)
  1. VENTOLIN [Suspect]
     Dosage: NEBULISER
  2. AMINOPHYLLINE [Suspect]
     Dosage: 250 MG, INTRAVENOUS
     Route: 042
  3. BUPIVACAINE (BUPIVACAINE) [Suspect]
     Indication: PRODUCT USED FOR UNKNOWN INDICATION
     Dosage: 10 MG
  4. FORMOTEROL FUMARATE [Suspect]
     Indication: PRODUCT USED FOR UNKNOWN INDICATION
     Dosage: NEBULISER
  5. FENTANYL [Suspect]
     Indication: PRODUCT USED FOR UNKNOWN INDICATION
     Dosage: 10 MCG

REACTIONS (5)
  - HYPOTENSION [None]
  - DYSPNOEA [None]
  - ATRIAL TACHYCARDIA [None]
  - BLOOD PRESSURE INCREASED [None]
  - ARRHYTHMIA [None]
